FAERS Safety Report 10286596 (Version 1)
Quarter: 2014Q3

REPORT INFORMATION
  Report Type: Report from Study
  Country: AR (occurrence: AR)
  Receive Date: 20140709
  Receipt Date: 20140709
  Transmission Date: 20150326
  Serious: Yes (Death, Hospitalization)
  Sender: FDA-Public Use
  Company Number: PHHY2014AR084369

PATIENT
  Age: 91 Year
  Sex: Female

DRUGS (1)
  1. EXELON [Suspect]
     Active Substance: RIVASTIGMINE TARTRATE
     Indication: MEMORY IMPAIRMENT
     Dosage: 1.5 MG DAILY
     Route: 048

REACTIONS (3)
  - Cough [Unknown]
  - Cardio-respiratory arrest [Fatal]
  - Productive cough [Unknown]

NARRATIVE: CASE EVENT DATE: 20140520
